FAERS Safety Report 4524103-6 (Version None)
Quarter: 2004Q4

REPORT INFORMATION
  Report Type: 
  Country: None (occurrence: None)
  Receive Date: 20041119
  Receipt Date: 20040908
  Transmission Date: 20050328
  Serious: No
  Sender: FDA-Public Use
  Company Number: 208943

PATIENT
  Age: 59 Year
  Sex: Male
  Weight: 145.1 kg

DRUGS (1)
  1. RAPTIVA [Suspect]
     Indication: PSORIASIS
     Dosage: UNK ML1/WEEK, SUBCUTANEOUS
     Route: 058

REACTIONS (1)
  - WHITE BLOOD CELL COUNT INCREASED [None]
